FAERS Safety Report 7383710-6 (Version None)
Quarter: 2011Q1

REPORT INFORMATION
  Report Type: 
  Country: None (occurrence: None)
  Receive Date: 20110325
  Receipt Date: 20110325
  Transmission Date: 20110831
  Serious: Yes (Hospitalization)
  Sender: FDA-Public Use
  Company Number: None

PATIENT
  Sex: Male
  Weight: 10.2 kg

DRUGS (4)
  1. FLUOROURACIL [Suspect]
     Dosage: 270 MG
  2. VINCRISTINE SULFATE [Suspect]
     Dosage: .7 MG
  3. CISPLATIN [Suspect]
     Dosage: 45 MG
  4. DOXORUBICIN HCL [Suspect]
     Dosage: 27 MG

REACTIONS (9)
  - HAEMOGLOBIN DECREASED [None]
  - HYPOCALCAEMIA [None]
  - VOMITING [None]
  - TUMOUR HAEMORRHAGE [None]
  - DISSEMINATED INTRAVASCULAR COAGULATION [None]
  - HYPERTENSION [None]
  - INTRA-ABDOMINAL HAEMORRHAGE [None]
  - HYPONATRAEMIA [None]
  - HYPOKALAEMIA [None]
